FAERS Safety Report 22333072 (Version 1)
Quarter: 2023Q2

REPORT INFORMATION
  Report Type: Spontaneous
  Country: US (occurrence: None)
  Receive Date: 20230517
  Receipt Date: 20230517
  Transmission Date: 20230721
  Serious: No
  Sender: FDA-Public Use
  Company Number: 2023A111994

PATIENT

DRUGS (1)
  1. BREZTRI [Suspect]
     Active Substance: BUDESONIDE\FORMOTEROL\GLYCOPYRROLATE
     Route: 055

REACTIONS (6)
  - Osteopenia [Unknown]
  - Skin haemorrhage [Unknown]
  - Musculoskeletal disorder [Unknown]
  - Arthropathy [Unknown]
  - Mobility decreased [Unknown]
  - Muscle spasms [Unknown]
